FAERS Safety Report 9527034 (Version 2)
Quarter: 2014Q1

REPORT INFORMATION
  Report Type: Spontaneous
  Country: GB (occurrence: GB)
  Receive Date: 20130916
  Receipt Date: 20140313
  Transmission Date: 20141002
  Serious: Yes (Other)
  Sender: FDA-Public Use
  Company Number: GB-PFIZER INC-2013260879

PATIENT
  Age: 78 Year
  Sex: Female

DRUGS (4)
  1. RAMIPRIL [Suspect]
     Dosage: UNK
     Route: 065
  2. SERTRALINE HCL [Suspect]
     Dosage: UNK
     Route: 065
  3. OLANZAPINE [Suspect]
     Indication: VISUAL IMPAIRMENT
     Dosage: UNK
     Route: 065
  4. LOSARTAN POTASSIUM [Suspect]
     Dosage: UNK
     Route: 065

REACTIONS (12)
  - Hallucination [Unknown]
  - Confusional state [Unknown]
  - Constipation [Unknown]
  - Pallor [Unknown]
  - Infection [Unknown]
  - Back pain [Unknown]
  - Condition aggravated [Unknown]
  - Sopor [Unknown]
  - Fall [Unknown]
  - Feeling cold [Unknown]
  - Suspiciousness [Unknown]
  - Gait disturbance [Unknown]
